FAERS Safety Report 7183877-9 (Version None)
Quarter: 2010Q4

REPORT INFORMATION
  Report Type: 
  Country: None (occurrence: None)
  Receive Date: 20101222
  Receipt Date: 20101215
  Transmission Date: 20110411
  Serious: Yes (Other)
  Sender: FDA-Public Use
  Company Number: JP-ROCHE-736436

PATIENT
  Age: 47 Year
  Sex: Male

DRUGS (6)
  1. AVASTIN [Suspect]
     Indication: LARGE INTESTINE CARCINOMA
     Dosage: DOSAGE WAS UNCERTAIN
     Route: 041
  2. 5-FU [Concomitant]
     Dosage: ROUTE: INTRAVENOUS DRIP. DOSAGE WAS UNCERTAIN
     Route: 041
  3. 5-FU [Concomitant]
     Dosage: ROUTE: INTRAVENOUS BOLUS. DOSAGE IS UNCERTAIN
     Route: 041
  4. LEVOFOLINATE [Concomitant]
     Dosage: DOSAGE WAS UNCERTAIN
     Route: 041
  5. ELPLAT [Concomitant]
     Dosage: DOAGE WAS UNCERTAIN
     Route: 041
  6. DEXART [Concomitant]
     Dosage: NOTE: DOSAGE WAS UNCERTAIN.
     Route: 065

REACTIONS (3)
  - BRADYCARDIA [None]
  - LOSS OF CONSCIOUSNESS [None]
  - SHOCK [None]
